FAERS Safety Report 7908812-4 (Version None)
Quarter: 2011Q4

REPORT INFORMATION
  Report Type: 
  Country: None (occurrence: None)
  Receive Date: 20111111
  Receipt Date: 20111031
  Transmission Date: 20120403
  Serious: Yes (Other)
  Sender: FDA-Public Use
  Company Number: US-BAYER-2011-033019

PATIENT
  Age: 20 Year
  Sex: Female
  Weight: 102 kg

DRUGS (13)
  1. YAZ [Suspect]
     Indication: CONTRACEPTION
     Dosage: UNK
     Dates: start: 20070101, end: 20080101
  2. DROSPIRENONE AND ETHINYL ESTRADIOL [Suspect]
     Dosage: UNK
     Dates: start: 20091001, end: 20100201
  3. ALBUTEROL [Concomitant]
     Dosage: UNK UNK, PRN
  4. SERTRALINE HYDROCHLORIDE [Concomitant]
     Dosage: 50 MG, QD
     Route: 048
  5. YAZ [Suspect]
     Dosage: UNK
     Dates: start: 20091001, end: 20100201
  6. LOTRISONE [Concomitant]
     Dosage: UNK UNK, TID
  7. YASMIN [Suspect]
     Indication: CONTRACEPTION
     Dosage: UNK
     Dates: start: 20070101, end: 20080101
  8. EPIPEN [Concomitant]
     Indication: ARTHROPOD STING
  9. DROSPIRENONE AND ETHINYL ESTRADIOL [Suspect]
     Indication: CONTRACEPTION
     Dosage: UNK
     Dates: start: 20070101, end: 20080101
  10. YASMIN [Suspect]
     Dosage: UNK
     Dates: start: 20091001, end: 20100201
  11. VITAMIN D [Concomitant]
     Route: 048
  12. TRAZODONE HCL [Concomitant]
     Dosage: 50 MG, PRN
     Route: 048
  13. PANTOPRAZOLE SODIUM [Concomitant]
     Dosage: 40 MG, QD
     Route: 048

REACTIONS (3)
  - PAIN [None]
  - GALLBLADDER DISORDER [None]
  - INJURY [None]
